FAERS Safety Report 7132953-5 (Version None)
Quarter: 2010Q4

REPORT INFORMATION
  Report Type: 
  Country: None (occurrence: None)
  Receive Date: 20101202
  Receipt Date: 20101130
  Transmission Date: 20110411
  Serious: Yes (Other)
  Sender: FDA-Public Use
  Company Number: CHPA2010US18367

PATIENT
  Age: 58 Year
  Sex: Male
  Weight: 88.435 kg

DRUGS (1)
  1. EXCEDRIN TENSION HEADACHE(NCH) [Suspect]
     Indication: TENSION HEADACHE
     Dosage: 2 DF, TID
     Route: 048
     Dates: start: 20090101

REACTIONS (2)
  - DRUG DEPENDENCE [None]
  - INTENTIONAL DRUG MISUSE [None]
